FAERS Safety Report 6736317-5 (Version None)
Quarter: 2010Q2

REPORT INFORMATION
  Report Type: 
  Country: None (occurrence: None)
  Receive Date: 20100521
  Receipt Date: 20100513
  Transmission Date: 20101027
  Serious: Yes (Hospitalization, Other)
  Sender: FDA-Public Use
  Company Number: US-GENZYME-THYM-1001464

PATIENT
  Sex: Female
  Weight: 68 kg

DRUGS (15)
  1. THYMOGLOBULIN [Suspect]
     Indication: PROPHYLAXIS AGAINST TRANSPLANT REJECTION
     Dosage: 100 MG, QD
     Route: 042
     Dates: start: 20091215, end: 20091216
  2. CEFAZOLIN [Concomitant]
     Indication: DRUG USE FOR UNKNOWN INDICATION
  3. METHYLPREDNISOLONE [Concomitant]
     Indication: IMMUNOSUPPRESSION
     Dosage: 400 MG, ONCE
     Dates: start: 20091215
  4. METHYLPREDNISOLONE [Concomitant]
     Dosage: 200 MG, ONCE
     Dates: start: 20091215
  5. METHYLPREDNISOLONE [Concomitant]
     Dosage: 20 MG, QD
     Route: 048
     Dates: start: 20091215
  6. MYCOPHENOLATE MOFETIL [Concomitant]
     Indication: IMMUNOSUPPRESSION
     Dosage: 1000 MG, Q12HR
     Route: 048
     Dates: start: 20091215
  7. HEPARIN [Concomitant]
     Indication: THROMBOSIS PROPHYLAXIS
     Dosage: 5000 U, TID
     Dates: start: 20091216, end: 20091217
  8. METOPROLOL TARTRATE [Concomitant]
     Indication: BLOOD PRESSURE MANAGEMENT
     Dosage: 5 MG, QID
     Dates: start: 20091216, end: 20091217
  9. MORPHINE [Concomitant]
     Indication: DRUG USE FOR UNKNOWN INDICATION
     Dosage: UNK
     Dates: start: 20091216
  10. RANITIDINE [Concomitant]
     Indication: PROPHYLAXIS AGAINST GASTROINTESTINAL ULCER
     Dosage: 150 MG, QD
     Dates: start: 20091216
  11. COTRIM [Concomitant]
     Indication: INFECTION PROPHYLAXIS
     Dosage: UNK
     Dates: start: 20091216
  12. CLOTRIMAZOLE [Concomitant]
     Indication: INFECTION PROPHYLAXIS
     Dosage: 10 MG, TID
     Dates: start: 20091216
  13. VALGANCICLOVIR HCL [Concomitant]
     Indication: INFECTION PROPHYLAXIS
     Dosage: 450 MG, QOD
     Dates: start: 20091216
  14. TACROLIMUS [Concomitant]
     Indication: IMMUNOSUPPRESSION
     Dosage: 1 MG, Q12HR
     Dates: start: 20091222
  15. BASILIXIMAB [Concomitant]
     Indication: PROPHYLAXIS AGAINST TRANSPLANT REJECTION

REACTIONS (3)
  - GRAFT DYSFUNCTION [None]
  - HAEMOLYTIC URAEMIC SYNDROME [None]
  - HYPERKALAEMIA [None]
